APPROVED DRUG PRODUCT: MAFENIDE ACETATE
Active Ingredient: MAFENIDE ACETATE
Strength: 5%
Dosage Form/Route: FOR SOLUTION;TOPICAL
Application: A206716 | Product #001
Applicant: NOVAST LABORATORIES LTD
Approved: Jul 31, 2017 | RLD: No | RS: No | Type: DISCN